FAERS Safety Report 24381079 (Version 3)
Quarter: 2025Q2

REPORT INFORMATION
  Report Type: Spontaneous
  Country: JP (occurrence: JP)
  Receive Date: 20240930
  Receipt Date: 20250404
  Transmission Date: 20250717
  Serious: Yes (Other)
  Sender: MERCK SHARP & DOHME LLC
  Company Number: JP-009507513-2409JPN009686

PATIENT
  Age: 80 Year
  Sex: Female

DRUGS (3)
  1. KEYTRUDA [Suspect]
     Active Substance: PEMBROLIZUMAB
     Indication: Skin squamous cell carcinoma metastatic
     Dosage: DOSE DESCRIPTION : EVERY 3 WEEKS, FROM THE 2ND COURSE; THEN AS MONOTHERAPY
     Route: 041
  2. CARBOPLATIN [Concomitant]
     Active Substance: CARBOPLATIN
     Indication: Skin squamous cell carcinoma metastatic
  3. ABRAXANE [Concomitant]
     Active Substance: PACLITAXEL
     Indication: Skin squamous cell carcinoma metastatic

REACTIONS (3)
  - Pericardial effusion [Recovered/Resolved]
  - Cardiotoxicity [Unknown]
  - Off label use [Unknown]
